FAERS Safety Report 11665216 (Version 1)
Quarter: 2015Q4

REPORT INFORMATION
  Report Type: Spontaneous
  Country: US (occurrence: US)
  Receive Date: 20151027
  Receipt Date: 20151027
  Transmission Date: 20160304
  Serious: Yes (Hospitalization, Other)
  Sender: FDA-Public Use
  Company Number: US-BAYER-2015-446569

PATIENT
  Sex: Female

DRUGS (3)
  1. CIPRO [Suspect]
     Active Substance: CIPROFLOXACIN HYDROCHLORIDE
     Indication: PNEUMONIA
     Dosage: 500 MG, BID
  2. ROCEPHIN [Suspect]
     Active Substance: CEFTRIAXONE SODIUM
     Dosage: UNK
     Route: 030
  3. LEVOFLOXACIN. [Suspect]
     Active Substance: LEVOFLOXACIN
     Indication: PNEUMONIA
     Dosage: UNK
     Route: 042

REACTIONS (13)
  - Chest pain [None]
  - Activities of daily living impaired [None]
  - Arthralgia [None]
  - Pneumonia [None]
  - Hypokinesia [None]
  - Balance disorder [None]
  - Hypoacusis [None]
  - General physical health deterioration [None]
  - Dyspnoea [None]
  - Tinnitus [None]
  - Neuropathy peripheral [None]
  - Fall [None]
  - Hyperacusis [None]

NARRATIVE: CASE EVENT DATE: 201401
